FAERS Safety Report 18533859 (Version 1)
Quarter: 2020Q4

REPORT INFORMATION
  Report Type: Spontaneous
  Country: US (occurrence: US)
  Receive Date: 20201121
  Receipt Date: 20201121
  Transmission Date: 20210114
  Serious: Yes (Other)
  Sender: FDA-Public Use
  Company Number: None

PATIENT
  Age: 24 Year
  Sex: Female

DRUGS (1)
  1. MIRENA [Suspect]
     Active Substance: LEVONORGESTREL

REACTIONS (7)
  - Vaginal haemorrhage [None]
  - Urinary incontinence [None]
  - Muscle spasms [None]
  - Bladder spasm [None]
  - Iron deficiency anaemia [None]
  - Vulvovaginal dryness [None]
  - Dyspareunia [None]
